FAERS Safety Report 4718048-6 (Version None)
Quarter: 2005Q3

REPORT INFORMATION
  Report Type: 
  Country: None (occurrence: None)
  Receive Date: 20050720
  Receipt Date: 20050707
  Transmission Date: 20060218
  Serious: Yes (Hospitalization, Other)
  Sender: FDA-Public Use
  Company Number: 2005AP03800

PATIENT
  Age: 22829 Day
  Sex: Female

DRUGS (16)
  1. IRESSA [Suspect]
     Indication: BREAST CANCER
     Route: 048
     Dates: start: 20050420
  2. EPIRUBICIN [Suspect]
     Indication: BREAST CANCER
     Route: 042
     Dates: start: 20050420, end: 20050420
  3. EPIRUBICIN [Suspect]
     Route: 042
     Dates: start: 20050512, end: 20050512
  4. EPIRUBICIN [Suspect]
     Dosage: DOSE REDUCED ACCORDING TO INSTITUTIONAL PRACTISE
     Route: 042
     Dates: start: 20050607, end: 20050607
  5. EPIRUBICIN [Suspect]
     Dosage: DOSE REDUCED ACCORDING TO INSTITUTIONAL PRACTISE
     Route: 042
     Dates: start: 20050628, end: 20050628
  6. CYCLOPHOSPHAMIDE [Suspect]
     Indication: BREAST CANCER
     Route: 042
     Dates: start: 20050420, end: 20050420
  7. CYCLOPHOSPHAMIDE [Suspect]
     Route: 042
     Dates: start: 20050512, end: 20050512
  8. CYCLOPHOSPHAMIDE [Suspect]
     Dosage: DOSE REDUCED ACCORDING TO INSTITUTIONAL PRACTISE
     Route: 042
     Dates: start: 20050607, end: 20050607
  9. CYCLOPHOSPHAMIDE [Suspect]
     Dosage: DOSE REDUCED ACCORDING TO INSTITUTIONAL PRACTISE
     Route: 042
     Dates: start: 20050628, end: 20050628
  10. NAVOBAN [Concomitant]
     Indication: ANTIEMETIC SUPPORTIVE CARE
     Route: 042
     Dates: start: 20050420
  11. NAVOBAN [Concomitant]
     Route: 048
     Dates: start: 20050421
  12. BETAPRED [Concomitant]
     Indication: ANTIEMETIC SUPPORTIVE CARE
     Route: 042
     Dates: start: 20050420
  13. BETAPRED [Concomitant]
     Route: 048
     Dates: start: 20050421
  14. ALVEDON [Concomitant]
     Indication: HEADACHE
     Route: 048
     Dates: start: 20050501
  15. SELEXID [Concomitant]
     Indication: URINARY TRACT INFECTION
     Route: 048
     Dates: start: 20050602, end: 20050612
  16. CIPROXIN [Concomitant]
     Indication: URINARY TRACT INFECTION
     Route: 048
     Dates: start: 20050615, end: 20050625

REACTIONS (2)
  - FEBRILE NEUTROPENIA [None]
  - INTERSTITIAL LUNG DISEASE [None]
